FAERS Safety Report 25588193 (Version 1)
Quarter: 2025Q3

REPORT INFORMATION
  Report Type: Spontaneous
  Country: CA (occurrence: CA)
  Receive Date: 20250722
  Receipt Date: 20250722
  Transmission Date: 20251021
  Serious: Yes (Hospitalization, Other)
  Sender: EXELA PHARMA SCIENCES
  Company Number: CA-EXELAPHARMA-2025EXLA00125

PATIENT
  Age: 80 Year
  Sex: Male

DRUGS (6)
  1. DILTIAZEM HYDROCHLORIDE [Suspect]
     Active Substance: DILTIAZEM HYDROCHLORIDE
     Indication: Atrial fibrillation
  2. DILTIAZEM HYDROCHLORIDE [Suspect]
     Active Substance: DILTIAZEM HYDROCHLORIDE
  3. ENZALUTAMIDE [Suspect]
     Active Substance: ENZALUTAMIDE
     Indication: Prostate cancer metastatic
  4. DABIGATRAN [Concomitant]
     Active Substance: DABIGATRAN
  5. ESCITALOPRAM [Concomitant]
     Active Substance: ESCITALOPRAM OXALATE
  6. FUROSEMIDE [Concomitant]
     Active Substance: FUROSEMIDE

REACTIONS (10)
  - Hypervolaemia [Recovered/Resolved]
  - Orthopnoea [Recovered/Resolved]
  - Drug ineffective [Unknown]
  - Arrhythmia induced cardiomyopathy [Recovered/Resolved]
  - Tachycardia [Recovered/Resolved]
  - Labelled drug-drug interaction issue [Recovered/Resolved]
  - Cardiac failure [Recovered/Resolved]
  - Oedema [Recovered/Resolved]
  - Dyspnoea [Recovered/Resolved]
  - Syncope [Recovered/Resolved]
